FAERS Safety Report 17110967 (Version 2)
Quarter: 2020Q1

REPORT INFORMATION
  Report Type: Spontaneous
  Country: US (occurrence: US)
  Receive Date: 20191204
  Receipt Date: 20200214
  Transmission Date: 20200409
  Serious: No
  Sender: FDA-Public Use
  Company Number: US-PFIZER INC-2019520042

PATIENT
  Age: 36 Year
  Sex: Female
  Weight: 97.96 kg

DRUGS (3)
  1. LYRICA [Suspect]
     Active Substance: PREGABALIN
     Indication: FIBROMYALGIA
     Dosage: 150 MG, THREE TIMES A DAY
     Route: 048
     Dates: start: 20191126
  2. LYRICA [Suspect]
     Active Substance: PREGABALIN
     Dosage: 300 MG, ONCE A DAY (2 CAPSULES FOR 300MG IN THE MORNING)
     Dates: start: 2019
  3. LYRICA [Suspect]
     Active Substance: PREGABALIN
     Dosage: 450 MG, DAILY (NORMALLY TAKES 300MG IN THE MORNING AND 150MG IN THE EVENING)
     Dates: start: 2009

REACTIONS (4)
  - Pain [Not Recovered/Not Resolved]
  - Muscle spasms [Not Recovered/Not Resolved]
  - Muscle twitching [Recovered/Resolved]
  - Intentional product misuse [Unknown]

NARRATIVE: CASE EVENT DATE: 2019
